FAERS Safety Report 20488695 (Version 3)
Quarter: 2022Q1

REPORT INFORMATION
  Report Type: Spontaneous
  Country: US (occurrence: None)
  Receive Date: 20220218
  Receipt Date: 20220315
  Transmission Date: 20220423
  Serious: No
  Sender: FDA-Public Use
  Company Number: 2022A052944

PATIENT
  Age: 819 Month
  Sex: Female

DRUGS (1)
  1. SYMBICORT [Suspect]
     Active Substance: BUDESONIDE\FORMOTEROL FUMARATE DIHYDRATE
     Indication: Asthma
     Dosage: 160MCG/4.5MCG AS 2 PUFFS TWICE A DAY
     Route: 055

REACTIONS (6)
  - COVID-19 [Recovering/Resolving]
  - Obstructive airways disorder [Not Recovered/Not Resolved]
  - Incorrect dose administered by device [Unknown]
  - Device delivery system issue [Unknown]
  - Intentional device misuse [Unknown]
  - Off label use [Unknown]

NARRATIVE: CASE EVENT DATE: 20211101
